FAERS Safety Report 17185551 (Version 1)
Quarter: 2019Q4

REPORT INFORMATION
  Report Type: Spontaneous
  Country: US (occurrence: US)
  Receive Date: 20191220
  Receipt Date: 20191220
  Transmission Date: 20200122
  Serious: No
  Sender: FDA-Public Use
  Company Number: US-ASTRAZENECA-2019SF67923

PATIENT
  Weight: 64 kg

DRUGS (18)
  1. EXEMESTANE. [Concomitant]
     Active Substance: EXEMESTANE
  2. GAS-X [Concomitant]
     Active Substance: DIMETHICONE
  3. METFORMIN [Concomitant]
     Active Substance: METFORMIN HYDROCHLORIDE
  4. AFINITOR [Concomitant]
     Active Substance: EVEROLIMUS
  5. CARVEDILOL. [Concomitant]
     Active Substance: CARVEDILOL
  6. PEPCID AC [Concomitant]
     Active Substance: FAMOTIDINE
  7. FASLODEX [Suspect]
     Active Substance: FULVESTRANT
     Route: 030
  8. QUINAPRIL. [Concomitant]
     Active Substance: QUINAPRIL
  9. IBRANCE [Suspect]
     Active Substance: PALBOCICLIB
     Route: 048
     Dates: start: 201906
  10. CALCIUM [Concomitant]
     Active Substance: CALCIUM
  11. STOOL SOFTENER - LAXATIVE [Concomitant]
  12. IRON-VITAMIN C [Concomitant]
  13. MONTELUKAST SODIUM. [Concomitant]
     Active Substance: MONTELUKAST SODIUM
  14. VENTOLIN [Concomitant]
     Active Substance: ALBUTEROL SULFATE
  15. FULVESTRANT. [Concomitant]
     Active Substance: FULVESTRANT
  16. ZYRTEC [Concomitant]
     Active Substance: CETIRIZINE HYDROCHLORIDE
  17. ASPIRIN LOW DOSE [Concomitant]
     Active Substance: ASPIRIN
  18. VITAMIN D2 [Concomitant]
     Active Substance: ERGOCALCIFEROL

REACTIONS (2)
  - Hypersensitivity [Unknown]
  - Blood count abnormal [Unknown]
